FAERS Safety Report 8037651-1 (Version None)
Quarter: 2012Q1

REPORT INFORMATION
  Report Type: 
  Country: None (occurrence: None)
  Receive Date: 20120111
  Receipt Date: 20120103
  Transmission Date: 20120608
  Serious: Yes (Hospitalization, Other)
  Sender: FDA-Public Use
  Company Number: US-ELI_LILLY_AND_COMPANY-US201012001633

PATIENT
  Sex: Female
  Weight: 52.154 kg

DRUGS (38)
  1. FORTEO [Suspect]
     Dosage: 20 UG, QD
  2. MEGACE [Concomitant]
     Indication: INCREASED APPETITE
     Dosage: 20 MG, UNK
  3. METAMUCIL-2 [Concomitant]
     Dosage: 1 DF, QD
  4. FEOSOL [Concomitant]
     Dosage: 25 MG, BID
  5. ESTER-C [Concomitant]
     Dosage: 500 MG, QD
  6. OPTIVIT [Concomitant]
     Dosage: UNK, QD
  7. FORTEO [Suspect]
     Dosage: 20 UG, QD
     Dates: start: 20110629
  8. STRESSTABS WITH ZINC [Concomitant]
  9. SPIRIVA [Concomitant]
     Dosage: 2 DF, QD
  10. ULTRAM [Concomitant]
     Dosage: UNK, PRN
  11. FORTEO [Suspect]
     Dosage: 20 UG, DAILY (1/D)
     Dates: end: 20110625
  12. COREG [Concomitant]
     Dosage: 1.562 MG, UNK
  13. NAPROXEN (ALEVE) [Concomitant]
     Indication: PAIN
     Dosage: 220 MG, BID
  14. EFFEXOR [Concomitant]
     Dosage: UNK
  15. ARICEPT [Concomitant]
     Dosage: 10 MG, UNK
  16. ARICEPT [Concomitant]
     Dosage: 5 MG, QD
  17. POTASSIUM CHLORIDE [Concomitant]
     Dosage: 10 MEQ, QD
  18. FORTEO [Suspect]
     Dosage: 20 UG, QD
  19. SPIRIVA [Concomitant]
     Dosage: 1 DF, QD
  20. FEOSOL [Concomitant]
     Indication: ANAEMIA
     Dosage: 1 DF, BID
  21. ALTRAMET [Concomitant]
  22. FISH OIL [Concomitant]
  23. FERROSULFAT [Concomitant]
     Dosage: UNK, QD
  24. REMICADE [Concomitant]
     Indication: CROHN'S DISEASE
  25. LISINOPRIL [Concomitant]
  26. COMPAZINE [Concomitant]
     Dosage: UNK, PRN
  27. FORTEO [Suspect]
     Indication: OSTEOPOROSIS
     Dosage: 20 UG, DAILY (1/D)
     Dates: start: 20100916
  28. COREG [Concomitant]
     Dosage: 3.5 MG, QD
  29. ASACOL [Concomitant]
     Dosage: 800 MG, TID
  30. TYLENOL                                 /SCH/ [Concomitant]
     Indication: PAIN
     Dosage: 500 MG, PRN
  31. TYLENOL PM [Concomitant]
     Dosage: 2 DF, AT BEDTIME
  32. ADVAIR DISKUS 100/50 [Concomitant]
     Dosage: 2 DF, UNK
  33. ADVAIR DISKUS 100/50 [Concomitant]
     Dosage: 1 DF, BID
  34. PROTONIX [Concomitant]
     Dosage: UNK, BID
  35. FORTEO [Suspect]
     Dosage: 20 UG, QD
  36. ASACOL [Concomitant]
     Indication: CROHN'S DISEASE
     Dosage: 400 MG, TID
  37. VITAMIN D [Concomitant]
     Dosage: 2000 U, QD
  38. PRILOSEC [Concomitant]
     Dosage: UNK, PRN

REACTIONS (22)
  - URINARY TRACT INFECTION [None]
  - CARDIAC DISORDER [None]
  - CARDIAC FAILURE CONGESTIVE [None]
  - CONFUSIONAL STATE [None]
  - MUSCULOSKELETAL PAIN [None]
  - HERPES ZOSTER [None]
  - RENAL FAILURE [None]
  - FEELING COLD [None]
  - WEIGHT DECREASED [None]
  - OEDEMA PERIPHERAL [None]
  - GAIT DISTURBANCE [None]
  - ASTHENIA [None]
  - SEPSIS [None]
  - ULCER HAEMORRHAGE [None]
  - HYPOTENSION [None]
  - MALAISE [None]
  - FATIGUE [None]
  - BLOOD PRESSURE DECREASED [None]
  - DECREASED APPETITE [None]
  - ANAEMIA [None]
  - FALL [None]
  - DEHYDRATION [None]
